FAERS Safety Report 20700729 (Version 1)
Quarter: 2022Q2

REPORT INFORMATION
  Report Type: Spontaneous
  Country: US (occurrence: US)
  Receive Date: 20220412
  Receipt Date: 20220412
  Transmission Date: 20220721
  Serious: Yes (Hospitalization, Other)
  Sender: FDA-Public Use
  Company Number: US-NOVARTISPH-NVSC2022US080934

PATIENT
  Age: 78 Year
  Sex: Male

DRUGS (1)
  1. PROMACTA [Suspect]
     Active Substance: ELTROMBOPAG OLAMINE
     Indication: Prostate cancer
     Dosage: 50 MG, QD
     Route: 048
     Dates: start: 202202

REACTIONS (4)
  - Haemorrhoidal haemorrhage [Unknown]
  - Diverticulitis [Unknown]
  - Large intestine infection [Unknown]
  - Product use in unapproved indication [Unknown]

NARRATIVE: CASE EVENT DATE: 20220301
